FAERS Safety Report 15365989 (Version 4)
Quarter: 2018Q4

REPORT INFORMATION
  Report Type: Other
  Country: PL (occurrence: PL)
  Receive Date: 20180910
  Receipt Date: 20181210
  Transmission Date: 20190204
  Serious: Yes (Hospitalization, Other)
  Sender: FDA-Public Use
  Company Number: PL-APOTEX-2018AP020022

PATIENT
  Age: 85 Year
  Sex: Female

DRUGS (11)
  1. SERTRALINE [Suspect]
     Active Substance: SERTRALINE HYDROCHLORIDE
     Indication: PRODUCT USED FOR UNKNOWN INDICATION
     Dosage: 100 MG, QD, FREQUENCY: 100 DAYS
     Route: 065
  2. DONEPEZIL. [Suspect]
     Active Substance: DONEPEZIL
     Indication: PRODUCT USED FOR UNKNOWN INDICATION
     Dosage: 10 MG, QD (FREQUENCY: 10 DAYS)
     Route: 065
  3. CARVEDILOL. [Suspect]
     Active Substance: CARVEDILOL
     Indication: PRODUCT USED FOR UNKNOWN INDICATION
     Dosage: 6.25 MG, QD, FREQUENCY: 6.25 DAYS
     Route: 065
  4. CARVEDILOL. [Suspect]
     Active Substance: CARVEDILOL
     Dosage: 3.13 MG, QD, FREQUENCY: 6.25 DAYS
     Route: 065
  5. ZOFENOPRIL [Suspect]
     Active Substance: ZOFENOPRIL
     Indication: PRODUCT USED FOR UNKNOWN INDICATION
     Dosage: 7.5 MG, QD, FREQUENCY: 7.5 DAYS
     Route: 065
  6. MILK THISTLE                       /01131701/ [Suspect]
     Active Substance: DIETARY SUPPLEMENT\HERBALS\MILK THISTLE
     Indication: PRODUCT USED FOR UNKNOWN INDICATION
     Dosage: 140 MG, QD, FREQUENCY: 420 DAYS
     Route: 048
  7. TORASEMIDE [Suspect]
     Active Substance: TORSEMIDE
     Indication: PRODUCT USED FOR UNKNOWN INDICATION
     Dosage: 5 MG, QD, FREQUENCY: 5 DAYS
     Route: 065
  8. MIANSERINE                         /00390601/ [Suspect]
     Active Substance: MIANSERIN
     Indication: PRODUCT USED FOR UNKNOWN INDICATION
     Dosage: 30 MG, QD, FREQUENCY: 30 D
     Route: 065
  9. QUETIAPINE. [Suspect]
     Active Substance: QUETIAPINE
     Indication: PRODUCT USED FOR UNKNOWN INDICATION
     Dosage: 50 MG, QD, FREQUENCY: 50 DAYS
     Route: 065
  10. ATORVASTATIN [Suspect]
     Active Substance: ATORVASTATIN
     Indication: PRODUCT USED FOR UNKNOWN INDICATION
     Dosage: 20 MG, QD (FREQUENCY: 20 DAYS)
     Route: 065
  11. MILK THISTLE                       /01131701/ [Suspect]
     Active Substance: DIETARY SUPPLEMENT\HERBALS\MILK THISTLE
     Indication: ALANINE AMINOTRANSFERASE INCREASED
     Dosage: 420 MG, UNK
     Route: 048

REACTIONS (23)
  - Alanine aminotransferase increased [Recovered/Resolved]
  - Diarrhoea [Recovered/Resolved]
  - Muscle spasms [Recovered/Resolved]
  - Syncope [Recovered/Resolved]
  - Drug interaction [Recovered/Resolved]
  - Dry mouth [Recovered/Resolved]
  - Hepatitis [Recovered/Resolved]
  - Musculoskeletal chest pain [Recovering/Resolving]
  - Liver disorder [Recovered/Resolved]
  - Hypokalaemia [Recovered/Resolved]
  - Musculoskeletal chest pain [Recovered/Resolved]
  - Hyperhidrosis [Recovered/Resolved]
  - Sedation complication [Recovered/Resolved]
  - Liver function test increased [Recovered/Resolved]
  - Muscle contracture [Recovered/Resolved]
  - Nausea [Recovered/Resolved]
  - Abdominal pain upper [Recovered/Resolved]
  - Loss of consciousness [Recovered/Resolved]
  - Somnolence [Recovered/Resolved]
  - Abdominal pain [Recovered/Resolved]
  - Somnolence [Unknown]
  - Bradycardia [Recovered/Resolved]
  - Hepatic pain [Recovered/Resolved]
